FAERS Safety Report 9260173 (Version 1)
Quarter: 2013Q2

REPORT INFORMATION
  Report Type: Spontaneous
  Country: US (occurrence: US)
  Receive Date: 20130429
  Receipt Date: 20130429
  Transmission Date: 20140414
  Serious: No
  Sender: FDA-Public Use
  Company Number: US-PFIZER INC-2013133398

PATIENT
  Age: 44 Year
  Sex: Female
  Weight: 54.42 kg

DRUGS (4)
  1. GEODON [Suspect]
     Indication: DEPRESSION
     Dosage: 80 MG, DAILY
     Dates: start: 201201
  2. GEODON [Suspect]
     Indication: OBSESSIVE-COMPULSIVE DISORDER
  3. FLUOXETINE [Concomitant]
     Indication: DEPRESSION
     Dosage: 300 MG, 2X/DAY
  4. FLUOXETINE [Concomitant]
     Indication: OBSESSIVE-COMPULSIVE DISORDER

REACTIONS (2)
  - Skin disorder [Unknown]
  - Thermal burn [Unknown]
